FAERS Safety Report 8611361-1 (Version None)
Quarter: 2012Q3

REPORT INFORMATION
  Report Type: 
  Country: None (occurrence: None)
  Receive Date: 20120822
  Receipt Date: 20120813
  Transmission Date: 20120928
  Serious: Yes (Other)
  Sender: FDA-Public Use
  Company Number: CA-ELI_LILLY_AND_COMPANY-CA201206002580

PATIENT
  Age: 77 Year
  Sex: Female

DRUGS (26)
  1. ZOPICLONE [Concomitant]
     Dosage: 5 MG, UNK
  2. SINGULAIR [Concomitant]
     Dosage: 10 MG, EACH EVENING
  3. PANTOPRAZOLE [Concomitant]
     Dosage: 40 MG, BID
  4. DILTIAZEM [Concomitant]
     Dosage: 240 MG, EACH MORNING
  5. CYMBALTA [Suspect]
     Indication: FIBROMYALGIA
     Dosage: 30 MG, UNK
     Dates: start: 20120210, end: 20120301
  6. CLONAZEPAM [Concomitant]
     Dosage: 2 DF, PRN
  7. NITRODERM [Concomitant]
     Dosage: 0.8 MG, OTHER
  8. POLYCORT [Concomitant]
     Dosage: 200 UG, BID
  9. HIDROCLOROTIAZIDE [Concomitant]
     Dosage: 25 MG, QD
  10. ACTINOL [Concomitant]
     Dosage: 35 MG, WEEKLY (1/W)
  11. AMITRIPTYLINE HYDROCHLORIDE [Concomitant]
     Indication: PAIN
     Dosage: UNK, EACH EVENING
  12. VITALUX [Concomitant]
     Dosage: 1 DF, BID
  13. VITAMIN D [Concomitant]
     Dosage: 3000 IU, UNK
  14. CALCIUM [Concomitant]
     Dosage: 300 MG, TID
  15. SYNTHROID [Concomitant]
     Dosage: 0.05 MG, OTHER
  16. SYNTHROID [Concomitant]
     Dosage: 0.75 MG, OTHER
  17. ACETAMINOPHEN [Concomitant]
     Indication: PAIN
     Dosage: UNK
  18. GRAVOL TAB [Concomitant]
     Indication: MIGRAINE
     Dosage: UNK
  19. VAGIFEM [Concomitant]
     Route: 067
  20. CRESTOR [Concomitant]
     Dosage: 20 MG, EACH EVENING
  21. PERINDOPRIL ERBUMINE [Concomitant]
     Dosage: 2 MG, EACH EVENING
  22. BRICANYL [Concomitant]
     Dosage: UNK, PRN
  23. PREDNISONE TAB [Concomitant]
     Indication: ASTHMA
     Dosage: 3 MG, UNK
  24. ERGOCALCIFEROL [Concomitant]
     Dosage: 50000 IU, MONTHLY (1/M)
  25. ASPIRIN [Concomitant]
     Dosage: 81 MG, OTHER
  26. COLACE [Concomitant]

REACTIONS (3)
  - RECTAL HAEMORRHAGE [None]
  - COLITIS [None]
  - CONSTIPATION [None]
